FAERS Safety Report 9199180 (Version 1)
Quarter: 2013Q1

REPORT INFORMATION
  Report Type: Spontaneous
  Country: US (occurrence: US)
  Receive Date: 20130329
  Receipt Date: 20130329
  Transmission Date: 20140127
  Serious: No
  Sender: FDA-Public Use
  Company Number: US-009507513-1303USA013704

PATIENT
  Sex: Male

DRUGS (2)
  1. SAPHRIS [Suspect]
     Indication: BIPOLAR I DISORDER
     Dosage: UNK
     Route: 060
     Dates: start: 20130325
  2. SAPHRIS [Suspect]
     Dosage: UNK
     Route: 060
     Dates: start: 201303

REACTIONS (2)
  - Wrong technique in drug usage process [Unknown]
  - Hypoaesthesia oral [Recovering/Resolving]
